FAERS Safety Report 16438680 (Version 1)
Quarter: 2019Q2

REPORT INFORMATION
  Report Type: Spontaneous
  Country: US (occurrence: US)
  Receive Date: 20190507
  Receipt Date: 20190507
  Transmission Date: 20190711
  Serious: No
  Sender: FDA-Public Use
  Company Number: None

PATIENT
  Age: 52 Year
  Sex: Female

DRUGS (1)
  1. TREMFYA [Suspect]
     Active Substance: GUSELKUMAB
     Indication: PSORIASIS
     Dosage: ?          OTHER
     Route: 058
     Dates: start: 20190501

REACTIONS (3)
  - Fatigue [None]
  - Depressed mood [None]
  - Condition aggravated [None]

NARRATIVE: CASE EVENT DATE: 20190507
